FAERS Safety Report 6613980-0 (Version None)
Quarter: 2010Q1

REPORT INFORMATION
  Report Type: 
  Country: None (occurrence: None)
  Receive Date: 20100304
  Receipt Date: 20100222
  Transmission Date: 20100710
  Serious: Yes (Hospitalization, Other)
  Sender: FDA-Public Use
  Company Number: BR-SANOFI-AVENTIS-2010SA009880

PATIENT
  Age: 59 Year
  Sex: Female
  Weight: 75 kg

DRUGS (7)
  1. OXALIPLATIN [Suspect]
     Route: 041
     Dates: start: 20091214, end: 20091214
  2. OXALIPLATIN [Suspect]
     Route: 041
  3. LEUCOVORIN CALCIUM [Suspect]
     Route: 041
     Dates: start: 20091214, end: 20091214
  4. LEUCOVORIN CALCIUM [Suspect]
     Route: 041
  5. FLUOROURACIL [Suspect]
     Route: 042
     Dates: start: 20091214, end: 20091214
  6. FLUOROURACIL [Suspect]
     Route: 042
  7. INVESTIGATIONAL DRUG [Suspect]
     Route: 058
     Dates: start: 20091215, end: 20100123

REACTIONS (1)
  - MENTAL DISORDER [None]
